FAERS Safety Report 6758371-7 (Version None)
Quarter: 2010Q2

REPORT INFORMATION
  Report Type: 
  Country: None (occurrence: None)
  Receive Date: 20100607
  Receipt Date: 20100602
  Transmission Date: 20101027
  Serious: Yes (Death)
  Sender: FDA-Public Use
  Company Number: JP-SANOFI-AVENTIS-2010SA031588

PATIENT
  Age: 78 Year
  Sex: Male

DRUGS (2)
  1. OXALIPLATIN [Suspect]
     Route: 041
  2. XELODA [Suspect]
     Dosage: TRI-WEEKLY
     Route: 048
     Dates: start: 20100402, end: 20100503

REACTIONS (2)
  - ASPHYXIA [None]
  - PNEUMONIA ASPIRATION [None]
